FAERS Safety Report 6335538-3 (Version None)
Quarter: 2009Q3

REPORT INFORMATION
  Report Type: 
  Country: None (occurrence: None)
  Receive Date: 20090831
  Receipt Date: 20090821
  Transmission Date: 20100115
  Serious: Yes (Other)
  Sender: FDA-Public Use
  Company Number: JP-ASTRAZENECA-2009SE10022

PATIENT
  Age: 38 Year
  Sex: Male

DRUGS (3)
  1. SEROQUEL [Suspect]
     Route: 048
  2. MYSLEE [Suspect]
     Route: 048
  3. DEPROMEL [Suspect]
     Route: 048

REACTIONS (1)
  - PANCYTOPENIA [None]
